FAERS Safety Report 8702561 (Version 2)
Quarter: 2012Q4

REPORT INFORMATION
  Report Type: 
  Country: US (occurrence: US)
  Receive Date: 20120803
  Receipt Date: 20121002
  Transmission Date: 20130627
  Serious: Yes (Hospitalization, Other)
  Sender: FDA-Public Use
  Company Number: US-ROCHE-1094654

PATIENT
  Age: 68 None
  Sex: Female

DRUGS (1)
  1. XOLAIR [Suspect]
     Indication: ASTHMA
     Route: 058
     Dates: start: 20080411, end: 20081215

REACTIONS (3)
  - Hypersensitivity [Unknown]
  - Infection [Unknown]
  - Dyspnoea [Unknown]
